FAERS Safety Report 9602560 (Version 1)
Quarter: 2013Q4

REPORT INFORMATION
  Report Type: Spontaneous
  Country: US (occurrence: US)
  Receive Date: 20131007
  Receipt Date: 20131007
  Transmission Date: 20140711
  Serious: No
  Sender: FDA-Public Use
  Company Number: US-PFIZER INC-2013283694

PATIENT
  Sex: Female

DRUGS (2)
  1. LYRICA [Suspect]
     Indication: NEURALGIA
     Dosage: UNK, 3X/DAY
  2. LYRICA [Suspect]
     Dosage: UNK, 1X/DAY

REACTIONS (2)
  - Drug ineffective [Unknown]
  - Pain [Unknown]
